FAERS Safety Report 7009630-4 (Version None)
Quarter: 2010Q3

REPORT INFORMATION
  Report Type: 
  Country: None (occurrence: None)
  Receive Date: 20100923
  Receipt Date: 20100915
  Transmission Date: 20110219
  Serious: Yes (Other)
  Sender: FDA-Public Use
  Company Number: PHHY2010GB04645

PATIENT
  Sex: Male

DRUGS (5)
  1. CLOZARIL [Suspect]
     Indication: SCHIZOPHRENIA
     Dosage: 300MG/DAY
     Route: 048
     Dates: start: 20090916
  2. NEUPOGEN [Concomitant]
     Indication: NEUTROPENIA
     Dosage: 30 MILLION UNITS 3 TIMES A WEEK
  3. NEUPOGEN [Concomitant]
     Indication: NEUTROPENIA
     Dosage: 3 TIMES/WEEK
  4. NEUPOGEN [Concomitant]
     Dosage: ONCE/WEEK
  5. NEUPOGEN [Concomitant]
     Dosage: 15 MILLION UNITS ALTERNATE DAYS

REACTIONS (9)
  - BONE PAIN [None]
  - H1N1 INFLUENZA [None]
  - INFLUENZA LIKE ILLNESS [None]
  - NEUTROPHIL COUNT DECREASED [None]
  - NEUTROPHIL COUNT INCREASED [None]
  - OSTEOPOROSIS [None]
  - PYREXIA [None]
  - SPLENOMEGALY [None]
  - WHITE BLOOD CELL COUNT INCREASED [None]
